FAERS Safety Report 6510544-4 (Version None)
Quarter: 2009Q4

REPORT INFORMATION
  Report Type: 
  Country: None (occurrence: None)
  Receive Date: 20091222
  Receipt Date: 20091026
  Transmission Date: 20100525
  Serious: No
  Sender: FDA-Public Use
  Company Number: US-ASTRAZENECA-2009SE22591

PATIENT
  Age: 68 Year
  Sex: Male
  Weight: 113.4 kg

DRUGS (12)
  1. CRESTOR [Suspect]
     Indication: BLOOD CHOLESTEROL INCREASED
     Route: 048
     Dates: start: 20070101
  2. TRILIPLIX [Suspect]
     Indication: BLOOD CHOLESTEROL INCREASED
     Route: 065
     Dates: start: 20090401
  3. DIGOXIN [Concomitant]
  4. LEXAPRO [Concomitant]
  5. LASIX [Concomitant]
  6. ALLOPURINOL [Concomitant]
  7. XANAX [Concomitant]
  8. AVAPRO [Concomitant]
  9. COREG [Concomitant]
  10. POTASSIUM CHLORIDE [Concomitant]
  11. ASPIRIN [Concomitant]
  12. FISH OIL [Concomitant]

REACTIONS (2)
  - BACK PAIN [None]
  - BLOOD TRIGLYCERIDES INCREASED [None]
